FAERS Safety Report 8131901-9 (Version None)
Quarter: 2012Q1

REPORT INFORMATION
  Report Type: 
  Country: None (occurrence: None)
  Receive Date: 20120213
  Receipt Date: 20120208
  Transmission Date: 20120608
  Serious: Yes (Hospitalization, Other)
  Sender: FDA-Public Use
  Company Number: US-PFIZER INC-2012034391

PATIENT
  Sex: Female
  Weight: 59.86 kg

DRUGS (6)
  1. LIPITOR [Suspect]
     Indication: CARDIAC DISORDER
     Dosage: 20 MG, ONCE A DAY
     Route: 048
  2. WARFARIN [Concomitant]
     Dosage: UNK
  3. AMIODARONE [Concomitant]
     Dosage: UNK
  4. SYNTHROID [Concomitant]
     Dosage: UNK
  5. LASIX [Concomitant]
     Dosage: UNK
  6. LIPITOR [Suspect]
     Indication: DYSPNOEA

REACTIONS (4)
  - CATHETER PLACEMENT [None]
  - HIP FRACTURE [None]
  - WEIGHT DECREASED [None]
  - FALL [None]
